FAERS Safety Report 10114451 (Version 4)
Quarter: 2014Q2

REPORT INFORMATION
  Report Type: Spontaneous
  Country: US (occurrence: US)
  Receive Date: 20140426
  Receipt Date: 20140624
  Transmission Date: 20141212
  Serious: Yes (Death, Hospitalization, Other)
  Sender: FDA-Public Use
  Company Number: US-AMGEN-USASP2014029124

PATIENT
  Age: 84 Year
  Sex: Female

DRUGS (1)
  1. PROLIA [Suspect]
     Indication: PRODUCT USED FOR UNKNOWN INDICATION
     Dosage: UNK
     Route: 065
     Dates: start: 201311

REACTIONS (10)
  - Cardiac failure congestive [Fatal]
  - Hypertension [Fatal]
  - Sick sinus syndrome [Fatal]
  - Atrial fibrillation [Fatal]
  - Failure to thrive [Unknown]
  - Hypovolaemic shock [Unknown]
  - Cardiac disorder [Unknown]
  - Renal failure acute [Unknown]
  - Asthenia [Unknown]
  - Convulsion [Unknown]
